FAERS Safety Report 15127105 (Version 1)
Quarter: 2018Q3

REPORT INFORMATION
  Report Type: Spontaneous
  Country: IT (occurrence: IT)
  Receive Date: 20180710
  Receipt Date: 20180710
  Transmission Date: 20181010
  Serious: Yes (Other)
  Sender: FDA-Public Use
  Company Number: IT-BAYER-2018-124607

PATIENT
  Age: 50 Year
  Sex: Male

DRUGS (3)
  1. STIVARGA [Suspect]
     Active Substance: REGORAFENIB
     Indication: RECTAL ADENOCARCINOMA
     Dosage: DAILY DOSE 120 MG
     Dates: end: 201805
  2. SALINE [SODIUM CHLORIDE] [Concomitant]
     Active Substance: SODIUM CHLORIDE
  3. STIVARGA [Suspect]
     Active Substance: REGORAFENIB
     Indication: RECTAL ADENOCARCINOMA
     Dosage: DAILY DOSE 160 MG
     Dates: start: 201708

REACTIONS (3)
  - Rectal adenocarcinoma [None]
  - Rash [Recovering/Resolving]
  - Pyrexia [None]
